FAERS Safety Report 6080929-1 (Version None)
Quarter: 2009Q1

REPORT INFORMATION
  Report Type: 
  Country: None (occurrence: None)
  Receive Date: 20090217
  Receipt Date: 20090212
  Transmission Date: 20090719
  Serious: No
  Sender: FDA-Public Use
  Company Number: US-B.I. PHARMACEUTICALS,INC./RIDGEFIELD-2009-BP-01793BP

PATIENT
  Age: 72 Year
  Sex: Male

DRUGS (3)
  1. FLOMAX [Suspect]
     Indication: BENIGN PROSTATIC HYPERPLASIA
     Dosage: .4MG
     Route: 048
     Dates: start: 20080201
  2. ACTOS [Concomitant]
     Indication: DIABETES MELLITUS
  3. ATENOLOL [Concomitant]
     Indication: BLOOD PRESSURE INCREASED

REACTIONS (2)
  - DIZZINESS [None]
  - SEMEN VOLUME DECREASED [None]
